FAERS Safety Report 8600465-5 (Version None)
Quarter: 2012Q3

REPORT INFORMATION
  Report Type: 
  Country: None (occurrence: None)
  Receive Date: 20120817
  Receipt Date: 20120809
  Transmission Date: 20120928
  Serious: Yes (Life-Threatening, Other)
  Sender: FDA-Public Use
  Company Number: ES-ELI_LILLY_AND_COMPANY-ES201208003595

PATIENT
  Age: 38 Year
  Sex: Female

DRUGS (4)
  1. TIAPRIZAL [Concomitant]
     Indication: BULIMIA NERVOSA
     Dosage: UNK
     Dates: start: 20110502, end: 20120702
  2. TRAZODONA [Concomitant]
     Indication: BULIMIA NERVOSA
     Dosage: UNK
     Dates: start: 20110502, end: 20110702
  3. DIAZEPAM [Concomitant]
     Indication: BULIMIA NERVOSA
     Dosage: UNK
     Dates: start: 20110502, end: 20110702
  4. PROZAC [Suspect]
     Indication: BULIMIA NERVOSA
     Dosage: 40 MG, UNK
     Route: 048
     Dates: start: 20110502

REACTIONS (4)
  - SYNCOPE [None]
  - VENTRICULAR TACHYCARDIA [None]
  - ELECTROCARDIOGRAM QT PROLONGED [None]
  - DRUG INTERACTION [None]
